FAERS Safety Report 5989437-7 (Version None)
Quarter: 2008Q4

REPORT INFORMATION
  Report Type: 
  Country: None (occurrence: None)
  Receive Date: 20081205
  Receipt Date: 20081121
  Transmission Date: 20090506
  Serious: Yes (Hospitalization)
  Sender: FDA-Public Use
  Company Number: KV200800599

PATIENT
  Sex: Female

DRUGS (1)
  1. MORPHINE SULFATE [Suspect]
     Indication: SURGERY
     Dosage: ORAL
     Route: 048

REACTIONS (2)
  - ACCIDENTAL OVERDOSE [None]
  - PRODUCT QUALITY ISSUE [None]
